FAERS Safety Report 17775197 (Version 8)
Quarter: 2022Q3

REPORT INFORMATION
  Report Type: Report from Study
  Country: US (occurrence: US)
  Receive Date: 20200513
  Receipt Date: 20220901
  Transmission Date: 20221026
  Serious: Yes (Death, Hospitalization, Other)
  Sender: FDA-Public Use
  Company Number: US-ACADIA PHARMACEUTICALS INC.-ACA-2020-PIM-000554

PATIENT
  Sex: Female

DRUGS (33)
  1. NUPLAZID [Suspect]
     Active Substance: PIMAVANSERIN TARTRATE
     Indication: Parkinson^s disease
     Dosage: 34 MILLIGRAM, QD
     Route: 048
     Dates: start: 201908
  2. NUPLAZID [Suspect]
     Active Substance: PIMAVANSERIN TARTRATE
     Dosage: ROTATE BETWEEN 1 CAPSULE AND 2 CAPSULES EVERY OTHER DAY
     Route: 048
  3. PREDNISONE [Suspect]
     Active Substance: PREDNISONE
  4. LEXAPRO [Concomitant]
     Active Substance: ESCITALOPRAM OXALATE
  5. LORATADINE [Concomitant]
     Active Substance: LORATADINE
  6. METHENAMINE MANDELATE [Concomitant]
     Active Substance: METHENAMINE MANDELATE
  7. THIAMINE HYDROCHLORIDE [Concomitant]
     Active Substance: THIAMINE HYDROCHLORIDE
  8. MAGNESIUM [Concomitant]
     Active Substance: MAGNESIUM
  9. VITAMIN D2 [Concomitant]
     Active Substance: ERGOCALCIFEROL
  10. ADVIL [Concomitant]
     Active Substance: IBUPROFEN
  11. AMANTADINE [Concomitant]
     Active Substance: AMANTADINE
  12. BOTOX [Concomitant]
     Active Substance: ONABOTULINUMTOXINA
  13. CARBIDOPA, LEVODOPA AND ENTACAPONE [Concomitant]
     Active Substance: CARBIDOPA\ENTACAPONE\LEVODOPA
  14. COL RITE STOOL SOFTENER [Concomitant]
  15. ESCITALOPRAM OXALATE [Concomitant]
     Active Substance: ESCITALOPRAM OXALATE
  16. ESTRADIOL [Concomitant]
     Active Substance: ESTRADIOL
  17. FOLIC ACID [Concomitant]
     Active Substance: FOLIC ACID
  18. GABAPENTIN [Concomitant]
     Active Substance: GABAPENTIN
  19. INBRIJA [Concomitant]
     Active Substance: LEVODOPA
  20. LACTULOSE [Concomitant]
     Active Substance: LACTULOSE
  21. LORAZEPAM [Concomitant]
     Active Substance: LORAZEPAM
  22. MEGESTROL ACETATE [Concomitant]
     Active Substance: MEGESTROL ACETATE
  23. MELATONIN [Concomitant]
     Active Substance: MELATONIN
  24. METHENAMINE HIPPURATE [Concomitant]
     Active Substance: METHENAMINE HIPPURATE
  25. MIRALAX [Concomitant]
     Active Substance: POLYETHYLENE GLYCOL 3350
  26. OMEPRAZOLE [Concomitant]
     Active Substance: OMEPRAZOLE
  27. PROBIOTICS NOS [Concomitant]
     Active Substance: PROBIOTICS NOS
  28. CARBOXYMETHYLCELLULOSE [Concomitant]
     Active Substance: CARBOXYMETHYLCELLULOSE
  29. RESTASIS [Concomitant]
     Active Substance: CYCLOSPORINE
  30. RYTARY [Concomitant]
     Active Substance: CARBIDOPA\LEVODOPA
  31. ERYTHROMYCIN [Concomitant]
     Active Substance: ERYTHROMYCIN
  32. MOXIFLOXACIN [Concomitant]
     Active Substance: MOXIFLOXACIN
  33. VALACYCLOVIR [Concomitant]
     Active Substance: VALACYCLOVIR HYDROCHLORIDE

REACTIONS (17)
  - Death [Fatal]
  - Urinary tract infection [Recovered/Resolved]
  - Pneumonia [Recovered/Resolved]
  - Dehydration [Recovered/Resolved]
  - Confusional state [Recovered/Resolved]
  - Urinary tract infection [Unknown]
  - Abnormal behaviour [Recovered/Resolved]
  - Inappropriate schedule of product administration [Unknown]
  - Confusional state [Recovered/Resolved]
  - Hallucination, visual [Unknown]
  - Hallucination, visual [Unknown]
  - Drug ineffective [Unknown]
  - Hallucination [Unknown]
  - Confusional state [Unknown]
  - Hallucination [Unknown]
  - Agitation [Unknown]
  - Overdose [Unknown]

NARRATIVE: CASE EVENT DATE: 20200101
